FAERS Safety Report 6905765-2 (Version None)
Quarter: 2010Q3

REPORT INFORMATION
  Report Type: 
  Country: None (occurrence: None)
  Receive Date: 20100804
  Receipt Date: 20100723
  Transmission Date: 20110219
  Serious: Yes (Death)
  Sender: FDA-Public Use
  Company Number: JP-GENZYME-THYM-1001722

PATIENT
  Sex: Female
  Weight: 65 kg

DRUGS (24)
  1. THYMOGLOBULIN [Suspect]
     Indication: APLASTIC ANAEMIA
     Dosage: 25 MG, ONCE
     Route: 042
     Dates: start: 20100122, end: 20100122
  2. THYMOGLOBULIN [Suspect]
     Dosage: 240 MG, QD
     Route: 042
     Dates: start: 20100122, end: 20100126
  3. ANTI-THYMOCYTE GLOBULIN NOS [Suspect]
     Indication: APLASTIC ANAEMIA
     Dosage: UNK
     Route: 042
     Dates: start: 20090122, end: 20090126
  4. CYCLOSPORINE [Concomitant]
     Indication: APLASTIC ANAEMIA
     Dosage: UNK
     Route: 065
     Dates: start: 20090110, end: 20100226
  5. NEUPOGEN [Concomitant]
     Indication: APLASTIC ANAEMIA
     Dosage: UNK
     Route: 065
     Dates: start: 20090120, end: 20090402
  6. ANABOLIC HORMONE [Concomitant]
     Indication: APLASTIC ANAEMIA
     Dosage: UNK
     Route: 065
     Dates: start: 20090423
  7. CORTICOSTEROIDS [Concomitant]
     Indication: APLASTIC ANAEMIA
     Dosage: UNK
     Route: 065
     Dates: start: 20091204
  8. DEFERASIROX [Concomitant]
     Indication: HAEMOCHROMATOSIS
     Dosage: UNK
     Route: 065
     Dates: start: 20091227, end: 20100224
  9. SULFAMETHOPRIM [Concomitant]
     Indication: ANTIFUNGAL PROPHYLAXIS
     Dosage: UNK
     Route: 065
     Dates: start: 20090122, end: 20100226
  10. FAMOTIDINE [Concomitant]
     Indication: PROPHYLAXIS AGAINST GASTROINTESTINAL ULCER
     Dosage: UNK
     Route: 065
     Dates: start: 20090122, end: 20100212
  11. LOXOPROFEN SODIUM [Concomitant]
     Indication: POST HERPETIC NEURALGIA
     Dosage: UNK
     Route: 065
     Dates: start: 20090219, end: 20100226
  12. MECOBALAMIN [Concomitant]
     Indication: POST HERPETIC NEURALGIA
     Dosage: UNK
     Route: 065
     Dates: start: 20090219, end: 20100226
  13. EXTRACT OBTAINED FROM INFLAMMATORY RABBIT SKIN INOCULA [Concomitant]
     Indication: POST HERPETIC NEURALGIA
     Dosage: UNK
     Route: 065
     Dates: start: 20090219, end: 20090226
  14. DANAZOL [Concomitant]
     Indication: APLASTIC ANAEMIA
     Dosage: UNK
     Route: 065
     Dates: start: 20091023, end: 20100220
  15. FUROSEMIDE [Concomitant]
     Indication: OEDEMA
     Dosage: UNK
     Route: 065
     Dates: start: 20090509, end: 20100226
  16. METHYLPREDNISOLONE SODIUM SUCCINATE [Concomitant]
     Indication: PREMEDICATION
     Dosage: UNK
     Route: 065
     Dates: start: 20100122, end: 20100126
  17. PREDNISOLONE [Concomitant]
     Indication: APLASTIC ANAEMIA
     Dosage: UNK
     Route: 065
     Dates: start: 20091223, end: 20100121
  18. PREDNISOLONE [Concomitant]
     Indication: PREMEDICATION
     Dosage: UNK
     Route: 065
     Dates: start: 20100121, end: 20100226
  19. HYDROCORTISONE SODIUM SUCCINATE [Concomitant]
     Indication: ALLERGY PROPHYLAXIS
     Dosage: UNK
     Route: 065
     Dates: start: 20100107, end: 20100124
  20. ACETAMINOPHEN [Concomitant]
     Indication: PREMEDICATION
     Dosage: UNK
     Route: 065
     Dates: start: 20100122, end: 20100126
  21. DIPHENHYDRAMINE HYDROCHLORIDE [Concomitant]
     Indication: PREMEDICATION
     Dosage: UNK
     Route: 065
     Dates: start: 20100122, end: 20100126
  22. LEVOFLOXACIN [Concomitant]
     Indication: INFECTION PROPHYLAXIS
     Dosage: UNK
     Route: 065
     Dates: start: 20100122, end: 20100212
  23. FLUCONAZOLE [Concomitant]
     Indication: INFECTION PROPHYLAXIS
     Dosage: UNK
     Route: 065
     Dates: start: 20100122, end: 20100212
  24. NEUPOGEN [Concomitant]
     Indication: APLASTIC ANAEMIA
     Dosage: UNK
     Route: 065
     Dates: start: 20100203, end: 20100217

REACTIONS (4)
  - DUODENAL ULCER HAEMORRHAGE [None]
  - LUNG INFECTION [None]
  - SUBDURAL HAEMATOMA [None]
  - WHITE BLOOD CELL COUNT DECREASED [None]
